FAERS Safety Report 17000924 (Version 1)
Quarter: 2019Q4

REPORT INFORMATION
  Report Type: Spontaneous
  Country: CA (occurrence: CA)
  Receive Date: 20191106
  Receipt Date: 20191106
  Transmission Date: 20200122
  Serious: Yes (Other)
  Sender: FDA-Public Use
  Company Number: CA-ALLERGAN-1944505US

PATIENT
  Sex: Female
  Weight: 46.71 kg

DRUGS (1)
  1. LOLO [Suspect]
     Active Substance: ETHINYL ESTRADIOL\NORETHINDRONE ACETATE
     Indication: CONTRACEPTION
     Dosage: 1 DF, QD
     Route: 048

REACTIONS (7)
  - Panic attack [Recovered/Resolved]
  - Depression [Recovered/Resolved]
  - Emotional disorder [Recovered/Resolved]
  - Suicidal ideation [Recovered/Resolved]
  - Alcohol interaction [Recovered/Resolved]
  - Thinking abnormal [Recovered/Resolved]
  - Emotional distress [Recovered/Resolved]
